FAERS Safety Report 6387616-0 (Version None)
Quarter: 2009Q4

REPORT INFORMATION
  Report Type: 
  Country: None (occurrence: None)
  Receive Date: 20091005
  Receipt Date: 20090925
  Transmission Date: 20100525
  Serious: No
  Sender: FDA-Public Use
  Company Number: US-JNJFOC-20090908510

PATIENT
  Sex: Male
  Weight: 79.38 kg

DRUGS (6)
  1. DURAGESIC-100 [Suspect]
     Indication: PAIN
     Route: 062
  2. PANTOPRAZOLE SODIUM [Concomitant]
     Route: 048
  3. DARVOCET [Concomitant]
     Indication: PAIN
     Dosage: 4-6 AS NEEDED
     Route: 048
  4. CELEBREX [Concomitant]
     Indication: PAIN
     Route: 048
  5. METOCLOPRAMIDE [Concomitant]
     Route: 048
  6. LIPITOR [Concomitant]
     Indication: BLOOD CHOLESTEROL INCREASED
     Route: 048

REACTIONS (2)
  - DRUG ADMINISTERED AT INAPPROPRIATE SITE [None]
  - DRUG INEFFECTIVE [None]
